FAERS Safety Report 16725768 (Version 4)
Quarter: 2019Q3

REPORT INFORMATION
  Report Type: Spontaneous
  Country: PT (occurrence: PT)
  Receive Date: 20190821
  Receipt Date: 20190924
  Transmission Date: 20191005
  Serious: Yes (Hospitalization, Other)
  Sender: FDA-Public Use
  Company Number: PHHY2019PT189712

PATIENT
  Age: 45 Year
  Sex: Female

DRUGS (3)
  1. ALPRAZOLAM. [Suspect]
     Active Substance: ALPRAZOLAM
     Indication: ANXIETY
     Dosage: 1 MG, QD,
     Route: 048
  2. ALPRAZOLAM. [Suspect]
     Active Substance: ALPRAZOLAM
     Dosage: 4 MG, QD
     Route: 065
  3. DESOGESTREL [Concomitant]
     Active Substance: DESOGESTREL
     Indication: CONTRACEPTION
     Dosage: 75 UG, UNK
     Route: 065

REACTIONS (13)
  - Gastroenteritis [Unknown]
  - Confusional state [Recovered/Resolved]
  - Tremor [Recovering/Resolving]
  - Drug abuse [Unknown]
  - Generalised tonic-clonic seizure [Recovered/Resolved]
  - Confusional state [Recovered/Resolved]
  - Drug withdrawal convulsions [Recovered/Resolved]
  - Hypokalaemia [Unknown]
  - Loss of consciousness [Recovered/Resolved]
  - Withdrawal syndrome [Recovered/Resolved]
  - Myoclonus [Recovering/Resolving]
  - Drug dependence [Unknown]
  - Epilepsy [Recovered/Resolved]

NARRATIVE: CASE EVENT DATE: 2016
